FAERS Safety Report 5296650-3 (Version None)
Quarter: 2007Q1

REPORT INFORMATION
  Report Type: 
  Country: None (occurrence: None)
  Receive Date: 20070201
  Receipt Date: 20061108
  Transmission Date: 20070707
  Serious: No
  Sender: FDA-Public Use
  Company Number: 2006PV024804

PATIENT
  Age: 49 Year
  Sex: Female
  Weight: 136.0791 kg

DRUGS (4)
  1. BYETTA [Suspect]
     Indication: DIABETES MELLITUS NON-INSULIN-DEPENDENT
     Dosage: 5 MCG; BID; SC
     Route: 058
     Dates: start: 20060501, end: 20060801
  2. PREDNISONE TAB [Suspect]
     Indication: PLATELET COUNT DECREASED
     Dosage: 10 MG; QD; PO
     Route: 048
     Dates: start: 20060801, end: 20061109
  3. GLUCOVANCE [Concomitant]
  4. AVANDIA [Concomitant]

REACTIONS (3)
  - BLOOD GLUCOSE INCREASED [None]
  - PLATELET COUNT DECREASED [None]
  - WEIGHT INCREASED [None]
